FAERS Safety Report 17593384 (Version 1)
Quarter: 2020Q1

REPORT INFORMATION
  Report Type: Spontaneous
  Country: CO (occurrence: CO)
  Receive Date: 20200327
  Receipt Date: 20200327
  Transmission Date: 20200409
  Serious: Yes (Other)
  Sender: FDA-Public Use
  Company Number: CO-JNJFOC-20200329975

PATIENT
  Sex: Female

DRUGS (2)
  1. RISPERDAL [Suspect]
     Active Substance: RISPERIDONE
     Indication: OBSESSIVE-COMPULSIVE DISORDER
     Dosage: ORAL DROPS
     Route: 048
  2. RISPERDAL CONSTA [Suspect]
     Active Substance: RISPERIDONE
     Indication: OBSESSIVE-COMPULSIVE DISORDER
     Route: 030

REACTIONS (13)
  - Haemorrhoids [Not Recovered/Not Resolved]
  - Vulvovaginal burning sensation [Unknown]
  - Asthenia [Unknown]
  - Hyperchlorhydria [Unknown]
  - Gastrointestinal disorder [Not Recovered/Not Resolved]
  - Somnolence [Unknown]
  - Inflammation [Unknown]
  - Dry eye [Unknown]
  - Off label use [Unknown]
  - Headache [Unknown]
  - Inappropriate schedule of product administration [Unknown]
  - Pain [Unknown]
  - Product use in unapproved indication [Unknown]

NARRATIVE: CASE EVENT DATE: 2018
